FAERS Safety Report 9171515 (Version 1)
Quarter: 2013Q1

REPORT INFORMATION
  Report Type: Spontaneous
  Country: US (occurrence: None)
  Receive Date: 20130130
  Receipt Date: 20130130
  Transmission Date: 20140127
  Serious: Yes (Other)
  Sender: FDA-Public Use
  Company Number: 2013034508

PATIENT
  Sex: Female
  Weight: 81.65 kg

DRUGS (6)
  1. BERINERT [Suspect]
     Indication: HEREDITARY ANGIOEDEMA
     Dosage: (1000 IU  PRN,  4 ML/MIN  INTRAVENOUS (NOT OTHERWISE SPECIFIED))?( )
     Route: 042
  2. FIRAZYR [Concomitant]
  3. CEFTIN [Concomitant]
  4. DIPHENHYDRAMINE (DIPHENHYDRAMINE) [Concomitant]
  5. SODIUM CHLORIDE [Concomitant]
  6. EPI-PEN (EPINEPHRINE HYDROCHLORIDE) [Concomitant]

REACTIONS (2)
  - Influenza [None]
  - Pharyngitis streptococcal [None]
